FAERS Safety Report 4287746-3 (Version None)
Quarter: 2004Q1

REPORT INFORMATION
  Report Type: 
  Country: None (occurrence: None)
  Receive Date: 20040205
  Receipt Date: 20040121
  Transmission Date: 20041129
  Serious: Yes (Hospitalization)
  Sender: FDA-Public Use
  Company Number: 173397

PATIENT
  Age: 56 Year
  Sex: Female

DRUGS (1)
  1. AVONEX [Suspect]
     Indication: MULTIPLE SCLEROSIS
     Dosage: 30 MCG QW IM
     Route: 030
     Dates: start: 20020405, end: 20030502

REACTIONS (5)
  - BREAST ABSCESS [None]
  - CORONARY ARTERY DISEASE [None]
  - DYSTHYMIC DISORDER [None]
  - MASTITIS [None]
  - RENAL FAILURE [None]
